FAERS Safety Report 8773150 (Version 2)
Quarter: 2012Q4

REPORT INFORMATION
  Report Type: 
  Country: JP (occurrence: JP)
  Receive Date: 20120907
  Receipt Date: 20120907
  Transmission Date: 20130627
  Serious: Yes (Other)
  Sender: FDA-Public Use
  Company Number: JP-ROCHE-1011061

PATIENT
  Sex: Male

DRUGS (3)
  1. ACTIVACIN [Suspect]
     Indication: CEREBRAL INFARCTION
     Route: 042
     Dates: start: 20110924, end: 20110924
  2. RADICUT [Concomitant]
     Indication: PRODUCT USED FOR UNKNOWN INDICATION
     Route: 065
     Dates: start: 20110924, end: 20111007
  3. GLYCEROL [Concomitant]
     Indication: PRODUCT USED FOR UNKNOWN INDICATION
     Route: 065
     Dates: start: 20110925, end: 20111004

REACTIONS (1)
  - Haemorrhagic cerebral infarction [Recovered/Resolved with Sequelae]
